FAERS Safety Report 24564115 (Version 1)
Quarter: 2024Q4

REPORT INFORMATION
  Report Type: Spontaneous
  Country: DE (occurrence: DE)
  Receive Date: 20241030
  Receipt Date: 20241030
  Transmission Date: 20250115
  Serious: Yes (Other)
  Sender: DEXCEL LTD.
  Company Number: DE-DEXPHARM-2024-3997

PATIENT
  Age: 39 Year
  Sex: Female

DRUGS (1)
  1. PERIOCHIP [Suspect]
     Active Substance: CHLORHEXIDINE GLUCONATE
     Indication: Periodontitis
     Dosage: ONE CHIP ; IN TOTAL
     Route: 050
     Dates: start: 20241015

REACTIONS (3)
  - Panic reaction [Recovered/Resolved]
  - Respiratory distress [Recovered/Resolved]
  - Lymphadenopathy [Recovered/Resolved]
